FAERS Safety Report 5241862-8 (Version None)
Quarter: 2007Q1

REPORT INFORMATION
  Report Type: 
  Country: None (occurrence: None)
  Receive Date: 20070220
  Receipt Date: 20070211
  Transmission Date: 20070707
  Serious: Yes (Hospitalization)
  Sender: FDA-Public Use
  Company Number: US-PFIZER INC-2007011188

PATIENT

DRUGS (1)
  1. GEODON [Suspect]

REACTIONS (1)
  - INTENTIONAL OVERDOSE [None]
